FAERS Safety Report 9426659 (Version 1)
Quarter: 2013Q3

REPORT INFORMATION
  Report Type: Spontaneous
  Country: US (occurrence: US)
  Receive Date: 20130730
  Receipt Date: 20130730
  Transmission Date: 20140515
  Serious: Yes (Hospitalization)
  Sender: FDA-Public Use
  Company Number: US-SANOFI-AVENTIS-2012SA049364

PATIENT
  Age: 48 Year
  Sex: Female
  Weight: 82 kg

DRUGS (7)
  1. AMBIEN [Suspect]
     Route: 065
  2. VIIBRYD [Suspect]
     Indication: MAJOR DEPRESSION
     Route: 048
     Dates: start: 20110812, end: 20110818
  3. LORTAB [Suspect]
     Route: 065
  4. HYDROCODONE [Suspect]
     Route: 065
  5. ALCOHOL [Suspect]
     Route: 048
  6. LAMOTRIGINE [Concomitant]
  7. WELLBUTRIN [Concomitant]

REACTIONS (2)
  - Suicide attempt [Recovered/Resolved]
  - Overdose [Recovered/Resolved]
